FAERS Safety Report 5641747-9 (Version None)
Quarter: 2008Q1

REPORT INFORMATION
  Report Type: 
  Country: None (occurrence: None)
  Receive Date: 20080227
  Receipt Date: 20080223
  Transmission Date: 20080703
  Serious: Yes (Hospitalization)
  Sender: FDA-Public Use
  Company Number: DE-AVENTIS-200810537DE

PATIENT
  Age: 82 Year
  Sex: Female

DRUGS (1)
  1. LANTUS [Suspect]
     Dosage: DOSE: 24 IU, REDUCED TO 6 IU
     Dates: start: 20070701

REACTIONS (1)
  - DIARRHOEA [None]
